FAERS Safety Report 6292334-3 (Version None)
Quarter: 2009Q3

REPORT INFORMATION
  Report Type: 
  Country: None (occurrence: None)
  Receive Date: 20090731
  Receipt Date: 20090701
  Transmission Date: 20100115
  Serious: No
  Sender: FDA-Public Use
  Company Number: US-BAYER-200925278NA

PATIENT
  Sex: Female

DRUGS (1)
  1. OCELLA [Suspect]
     Indication: DRUG USE FOR UNKNOWN INDICATION
     Dosage: TOTAL DAILY DOSE: 1 DF
     Route: 048
     Dates: start: 20090401

REACTIONS (3)
  - ALOPECIA [None]
  - DIARRHOEA [None]
  - MOOD SWINGS [None]
